FAERS Safety Report 9419085 (Version 2)
Quarter: 2013Q3

REPORT INFORMATION
  Report Type: Spontaneous
  Country: US (occurrence: US)
  Receive Date: 20130725
  Receipt Date: 20130903
  Transmission Date: 20140515
  Serious: No
  Sender: FDA-Public Use
  Company Number: US-PFIZER INC-2013213788

PATIENT
  Sex: 0

DRUGS (1)
  1. TYGACIL [Suspect]
     Dosage: UNK

REACTIONS (3)
  - Burning sensation [Unknown]
  - Infusion site extravasation [Unknown]
  - Skin discolouration [Unknown]
